FAERS Safety Report 14610097 (Version 2)
Quarter: 2018Q1

REPORT INFORMATION
  Report Type: Spontaneous
  Country: US (occurrence: US)
  Receive Date: 20180307
  Receipt Date: 20180322
  Transmission Date: 20180509
  Serious: No
  Sender: FDA-Public Use
  Company Number: US-PFIZER INC-2018091901

PATIENT
  Age: 18 Year
  Sex: Female

DRUGS (2)
  1. GENOTROPIN [Suspect]
     Active Substance: SOMATROPIN
     Indication: HORMONE THERAPY
  2. GENOTROPIN [Suspect]
     Active Substance: SOMATROPIN
     Indication: BLOOD GROWTH HORMONE
     Dosage: UNK (ON AND OFF)

REACTIONS (4)
  - Drug dose omission [Unknown]
  - Intentional product misuse [Unknown]
  - Treatment noncompliance [Unknown]
  - Headache [Unknown]
